FAERS Safety Report 10969847 (Version 2)
Quarter: 2015Q2

REPORT INFORMATION
  Report Type: Spontaneous
  Country: US (occurrence: US)
  Receive Date: 20150331
  Receipt Date: 20150410
  Transmission Date: 20150821
  Serious: No
  Sender: FDA-Public Use
  Company Number: US-PFIZER INC-2015106674

PATIENT
  Age: 53 Year
  Sex: Male

DRUGS (4)
  1. SUTENT [Suspect]
     Active Substance: SUNITINIB MALATE
     Indication: RENAL CANCER
     Dosage: 50 MG, CYCLIC, 28 DAYS ON, THEN 14 DAYS OFF
     Route: 048
     Dates: start: 20140328, end: 20150318
  2. OXYCODONE [Concomitant]
     Active Substance: OXYCODONE
  3. PAXIL [Concomitant]
     Active Substance: PAROXETINE HYDROCHLORIDE
  4. MORPHINE SULFATE. [Concomitant]
     Active Substance: MORPHINE SULFATE

REACTIONS (5)
  - Fatigue [Not Recovered/Not Resolved]
  - Renal cancer [Not Recovered/Not Resolved]
  - Pain of skin [Not Recovered/Not Resolved]
  - Disease progression [Not Recovered/Not Resolved]
  - Alopecia [Not Recovered/Not Resolved]

NARRATIVE: CASE EVENT DATE: 20150318
